FAERS Safety Report 6945778-8 (Version None)
Quarter: 2010Q3

REPORT INFORMATION
  Report Type: 
  Country: None (occurrence: None)
  Receive Date: 20100827
  Receipt Date: 20100817
  Transmission Date: 20110219
  Serious: Yes (Hospitalization)
  Sender: FDA-Public Use
  Company Number: B0670260A

PATIENT
  Sex: Female

DRUGS (2)
  1. LAMICTAL [Suspect]
     Indication: EPILEPSY
     Route: 048
     Dates: start: 20091215, end: 20100103
  2. DEPAKENE [Concomitant]
     Indication: EPILEPSY
     Route: 048
     Dates: start: 20050101, end: 20091231

REACTIONS (11)
  - BLISTER [None]
  - CONJUNCTIVITIS [None]
  - DYSPHONIA [None]
  - FACE OEDEMA [None]
  - LYMPHADENOPATHY [None]
  - MUCOSAL EXFOLIATION [None]
  - RASH MACULO-PAPULAR [None]
  - SALIVARY HYPERSECRETION [None]
  - SKIN EXFOLIATION [None]
  - SKIN LESION [None]
  - STEVENS-JOHNSON SYNDROME [None]
